FAERS Safety Report 10102691 (Version 2)
Quarter: 2014Q2

REPORT INFORMATION
  Report Type: Other
  Country: US (occurrence: US)
  Receive Date: 20140424
  Receipt Date: 20140629
  Transmission Date: 20141212
  Serious: Yes (Hospitalization, Other)
  Sender: FDA-Public Use
  Company Number: US-GSKPPD-2014GSK000319

PATIENT
  Age: 80 Year
  Sex: Female

DRUGS (6)
  1. AVANDIA [Suspect]
     Indication: DIABETES MELLITUS
     Dosage: AVANDIA WAS NOT LISTED AMONG THE PATIENT^S DISCHARGE RECORDS.
     Route: 048
  2. ASPIRIN [Concomitant]
     Route: 048
     Dates: start: 200902
  3. PLAVIX [Concomitant]
     Route: 048
     Dates: start: 200902
  4. MEVACOR [Concomitant]
     Route: 048
     Dates: start: 200902
  5. COREG [Concomitant]
     Route: 048
     Dates: start: 200902
  6. ENALAPRIL [Concomitant]
     Route: 048
     Dates: start: 200902

REACTIONS (1)
  - Myocardial infarction [Recovered/Resolved]
